FAERS Safety Report 9128511 (Version 1)
Quarter: 2013Q1

REPORT INFORMATION
  Report Type: Spontaneous
  Country: US (occurrence: US)
  Receive Date: 20130228
  Receipt Date: 20130228
  Transmission Date: 20140127
  Serious: No
  Sender: FDA-Public Use
  Company Number: US-GLAXOSMITHKLINE-A0999975A

PATIENT
  Age: 46 Year
  Sex: Female

DRUGS (6)
  1. IMITREX [Suspect]
     Indication: MIGRAINE
     Dosage: 6MG AS REQUIRED
     Route: 058
     Dates: start: 1997
  2. IMITREX [Suspect]
     Indication: MIGRAINE
     Route: 048
     Dates: start: 2011, end: 2011
  3. DEVICE [Suspect]
     Indication: MIGRAINE
     Route: 065
  4. FIORINAL [Concomitant]
  5. CARISOPRODOL [Concomitant]
  6. ALPRAZOLAM [Concomitant]

REACTIONS (5)
  - Injection site haemorrhage [Recovering/Resolving]
  - Injection site bruising [Unknown]
  - Somnolence [Unknown]
  - Drug ineffective [Unknown]
  - Product quality issue [Unknown]
